FAERS Safety Report 8484042-5 (Version None)
Quarter: 2012Q2

REPORT INFORMATION
  Report Type: 
  Country: None (occurrence: None)
  Receive Date: 20120627
  Receipt Date: 20120627
  Transmission Date: 20120825
  Serious: Yes (Life-Threatening, Hospitalization, Other)
  Sender: FDA-Public Use
  Company Number: None

PATIENT

DRUGS (1)
  1. ESCITALOPRAM [Suspect]
     Indication: ANXIETY
     Dosage: 1X DAY
     Dates: start: 20120319, end: 20120407

REACTIONS (4)
  - BLOOD PRESSURE INCREASED [None]
  - ANXIETY [None]
  - FEELING ABNORMAL [None]
  - INSOMNIA [None]
